FAERS Safety Report 16136922 (Version 3)
Quarter: 2019Q2

REPORT INFORMATION
  Report Type: Spontaneous
  Country: BE (occurrence: BE)
  Receive Date: 20190329
  Receipt Date: 20190418
  Transmission Date: 20190711
  Serious: Yes (Death, Life-Threatening, Hospitalization, Other)
  Sender: FDA-Public Use
  Company Number: PHHY2019BE071057

PATIENT
  Age: 67 Year
  Sex: Female
  Weight: 72 kg

DRUGS (13)
  1. CEFTAZIDIME. [Suspect]
     Active Substance: CEFTAZIDIME
     Indication: FEBRILE NEUTROPENIA
     Dosage: 2000 MG, Q8H
     Route: 042
  2. IDARUBICIN [Suspect]
     Active Substance: IDARUBICIN
     Dosage: 12 MG/M2, QD ON DAYS 3?5
     Route: 041
     Dates: start: 20171011
  3. COLIMYCIN [Suspect]
     Active Substance: COLISTIMETHATE SODIUM
     Indication: PSEUDOMONAS INFECTION
     Dosage: 2 ? 106
     Route: 042
  4. CYTARABINE. [Suspect]
     Active Substance: CYTARABINE
     Indication: ACUTE MYELOID LEUKAEMIA
     Dosage: 1000 MG/M2, BID
     Route: 041
  5. VANCOMYCIN [Suspect]
     Active Substance: VANCOMYCIN
     Indication: ANTIBIOTIC THERAPY
     Dosage: 2500 MG, QD
     Route: 042
  6. AMOXICILLIN. [Suspect]
     Active Substance: AMOXICILLIN
     Indication: ANTIBIOTIC THERAPY
  7. COLIMYCIN [Suspect]
     Active Substance: COLISTIMETHATE SODIUM
     Indication: MENINGITIS BACTERIAL
  8. IDARUBICIN [Suspect]
     Active Substance: IDARUBICIN
     Indication: ACUTE MYELOID LEUKAEMIA
     Dosage: 12 MG/M2, QD DAYS 1?3
     Route: 041
     Dates: start: 20170919
  9. CYTARABINE. [Suspect]
     Active Substance: CYTARABINE
     Indication: ACUTE MYELOID LEUKAEMIA
     Dosage: 200 MG/M2, UNK DAYS 1?7
     Route: 041
     Dates: start: 20171011
  10. AMOXICILLIN. [Suspect]
     Active Substance: AMOXICILLIN
     Indication: MENINGITIS BACTERIAL
     Dosage: 2000 MG, Q4H
     Route: 042
  11. LEVOFLOXACIN. [Suspect]
     Active Substance: LEVOFLOXACIN
     Indication: INFECTION PROPHYLAXIS
     Dosage: 500 MG, QD
     Route: 065
  12. CEFTAZIDIME. [Suspect]
     Active Substance: CEFTAZIDIME
     Indication: MENINGITIS BACTERIAL
  13. VANCOMYCIN [Suspect]
     Active Substance: VANCOMYCIN
     Indication: MENINGITIS BACTERIAL
     Dosage: 1400 MG, OVER 2 HOURS
     Route: 042

REACTIONS (19)
  - Brain herniation [Unknown]
  - Pseudomonas infection [Unknown]
  - Meningitis [Fatal]
  - Vomiting [Fatal]
  - Meningitis bacterial [Fatal]
  - CNS ventriculitis [Unknown]
  - Diarrhoea [Unknown]
  - Febrile neutropenia [Unknown]
  - Lethargy [Unknown]
  - Brain oedema [Unknown]
  - Photophobia [Fatal]
  - Hydrocephalus [Unknown]
  - Mydriasis [Unknown]
  - Headache [Fatal]
  - Asthenia [Unknown]
  - Product use in unapproved indication [Unknown]
  - Stomatococcal infection [Fatal]
  - Pupils unequal [Unknown]
  - Oedema [Unknown]

NARRATIVE: CASE EVENT DATE: 201710
